FAERS Safety Report 7185014-3 (Version None)
Quarter: 2010Q4

REPORT INFORMATION
  Report Type: 
  Country: None (occurrence: None)
  Receive Date: 20101222
  Receipt Date: 20101209
  Transmission Date: 20110411
  Serious: Yes (Hospitalization, Other)
  Sender: FDA-Public Use
  Company Number: PHHY2010IL68383

PATIENT
  Age: 71 Year
  Sex: Male

DRUGS (4)
  1. TASIGNA [Suspect]
     Indication: CHRONIC MYELOID LEUKAEMIA
     Dosage: 800 MG DAILY
     Route: 048
  2. TASIGNA [Suspect]
     Dosage: 400 MG DAILY
  3. TASIGNA [Suspect]
     Dosage: 200 MG DAILY
  4. TASIGNA [Suspect]
     Dosage: 200 MG, BID

REACTIONS (3)
  - CHEST PAIN [None]
  - ELECTROCARDIOGRAM QT PROLONGED [None]
  - MYOCARDIAL ISCHAEMIA [None]
